FAERS Safety Report 19271370 (Version 1)
Quarter: 2021Q2

REPORT INFORMATION
  Report Type: Spontaneous
  Country: US (occurrence: US)
  Receive Date: 20210518
  Receipt Date: 20210518
  Transmission Date: 20210717
  Serious: Yes (Hospitalization, Other)
  Sender: FDA-Public Use
  Company Number: US-CASPER PHARMA LLC-2021CAS000144

PATIENT
  Age: 38 Year
  Sex: Male

DRUGS (1)
  1. PENICILLIN G BENZATHINE [Suspect]
     Active Substance: PENICILLIN G BENZATHINE
     Indication: NEUROSYPHILIS
     Dosage: 20 MILLION UNITS QD
     Route: 042

REACTIONS (3)
  - Stevens-Johnson syndrome [Recovered/Resolved]
  - Anaphylactic reaction [Recovered/Resolved]
  - Toxic epidermal necrolysis [Recovered/Resolved]
